FAERS Safety Report 5989419-5 (Version None)
Quarter: 2008Q4

REPORT INFORMATION
  Report Type: 
  Country: None (occurrence: None)
  Receive Date: 20081208
  Receipt Date: 20081121
  Transmission Date: 20090506
  Serious: Yes (Other)
  Sender: FDA-Public Use
  Company Number: 8039948

PATIENT
  Age: 33 Year
  Sex: Male

DRUGS (2)
  1. KEPPRA [Suspect]
     Indication: EPILEPSY
     Dosage: 3 G PO 1.5 G PO
     Route: 048
  2. LAMICTAL [Concomitant]

REACTIONS (4)
  - BLOOD TESTOSTERONE DECREASED [None]
  - INFERTILITY [None]
  - IRRITABILITY [None]
  - SPERMATOZOA PROGRESSIVE MOTILITY DECREASED [None]
